FAERS Safety Report 19158861 (Version 1)
Quarter: 2021Q2

REPORT INFORMATION
  Report Type: Spontaneous
  Country: TR (occurrence: TR)
  Receive Date: 20210420
  Receipt Date: 20210420
  Transmission Date: 20210717
  Serious: Yes (Hospitalization)
  Sender: FDA-Public Use
  Company Number: TR-AMNEAL PHARMACEUTICALS-2021-AMRX-01312

PATIENT
  Age: 32 Year
  Sex: Male

DRUGS (1)
  1. NAPROXEN. [Suspect]
     Active Substance: NAPROXEN
     Indication: HEADACHE
     Dosage: UNK
     Route: 065

REACTIONS (2)
  - Atrial fibrillation [Recovered/Resolved]
  - Kounis syndrome [Recovered/Resolved]
